FAERS Safety Report 11160321 (Version 1)
Quarter: 2015Q2

REPORT INFORMATION
  Report Type: Spontaneous
  Country: PL (occurrence: PL)
  Receive Date: 20150604
  Receipt Date: 20150604
  Transmission Date: 20150821
  Serious: Yes (Hospitalization)
  Sender: FDA-Public Use
  Company Number: PL-ROCHE-1587330

PATIENT
  Age: 53 Year

DRUGS (2)
  1. ACTILYSE [Suspect]
     Active Substance: ALTEPLASE
     Indication: CEREBRAL INFARCTION
     Route: 065
  2. ACTILYSE [Suspect]
     Active Substance: ALTEPLASE
     Indication: CAROTID ARTERIAL EMBOLUS

REACTIONS (3)
  - Cerebral infarction [Unknown]
  - Sopor [Unknown]
  - Brain oedema [Unknown]

NARRATIVE: CASE EVENT DATE: 2010
